FAERS Safety Report 6856016-9 (Version None)
Quarter: 2010Q3

REPORT INFORMATION
  Report Type: 
  Country: None (occurrence: None)
  Receive Date: 20100716
  Receipt Date: 20100716
  Transmission Date: 20110219
  Serious: Yes (Life-Threatening, Disabling, Other)
  Sender: FDA-Public Use
  Company Number: None

PATIENT
  Sex: Male
  Weight: 102.0593 kg

DRUGS (2)
  1. PREDNISONE [Suspect]
     Indication: PSORIASIS
     Dosage: 4 PILLS  IN MORNING! DON'T REMEMBER, CALL MY DOCTOR!
  2. DAPSONE [Suspect]
     Indication: SKIN DISORDER
     Dosage: 100 MG 1- AM. 2 PM. - LONG TIME

REACTIONS (5)
  - DIZZINESS [None]
  - MIDDLE INSOMNIA [None]
  - MUSCULAR WEAKNESS [None]
  - SWELLING [None]
  - SWELLING FACE [None]
